FAERS Safety Report 24899784 (Version 3)
Quarter: 2025Q2

REPORT INFORMATION
  Report Type: Report from Study
  Country: US (occurrence: US)
  Receive Date: 20250129
  Receipt Date: 20250605
  Transmission Date: 20250717
  Serious: Yes (Other)
  Sender: EMD SERONO INC
  Company Number: US-Merck Healthcare KGaA-2025003708

PATIENT
  Sex: Male

DRUGS (2)
  1. MAVENCLAD [Suspect]
     Active Substance: CLADRIBINE
     Indication: Multiple sclerosis
     Dates: start: 20240118, end: 20240122
  2. MAVENCLAD [Suspect]
     Active Substance: CLADRIBINE

REACTIONS (3)
  - Bone marrow disorder [Unknown]
  - Neoplasm malignant [Unknown]
  - Ill-defined disorder [Unknown]
